FAERS Safety Report 25215862 (Version 1)
Quarter: 2025Q2

REPORT INFORMATION
  Report Type: Spontaneous
  Country: FR (occurrence: FR)
  Receive Date: 20250418
  Receipt Date: 20250418
  Transmission Date: 20250717
  Serious: Yes (Hospitalization)
  Sender: AMERICAN REGENT
  Company Number: FR-AMERICAN REGENT INC-2025001635

PATIENT
  Age: 83 Year
  Sex: Female
  Weight: 48 kg

DRUGS (2)
  1. FERINJECT [Suspect]
     Active Substance: FERRIC CARBOXYMALTOSE
     Indication: Iron deficiency anaemia
     Route: 042
     Dates: start: 20250320, end: 20250320
  2. OMNIPAQUE [Suspect]
     Active Substance: IOHEXOL
     Indication: Computerised tomogram abdomen
     Route: 042
     Dates: start: 20250317, end: 20250317

REACTIONS (1)
  - Dermatitis exfoliative generalised [Recovering/Resolving]

NARRATIVE: CASE EVENT DATE: 20250321
